FAERS Safety Report 9513202 (Version 1)
Quarter: 2013Q1

REPORT INFORMATION
  Report Type: Spontaneous
  Country: US (occurrence: None)
  Receive Date: 20130305
  Receipt Date: 20130305
  Transmission Date: 20140127
  Serious: No
  Sender: FDA-Public Use
  Company Number: 163-21880-12010485

PATIENT
  Age: 65 Year
  Sex: Female

DRUGS (6)
  1. REVLIMID (LENALIDOMIDE) (25 MILLIGRAM, CAPSULES) [Suspect]
     Indication: PLASMA CELL MYELOMA
     Dosage: 25MG, 1 IN 1 D PO
     Route: 048
     Dates: start: 201004
  2. VELCADE [Concomitant]
  3. DEXAMETHASONE (DEXAMETHASONE) [Concomitant]
  4. CLONAZEPAM (CLONAZEPAM) [Concomitant]
  5. ACYCLOVIR (ACICLOVIR) [Concomitant]
  6. AMITRIPTYLINE (AMITRIPTYLINE) [Concomitant]

REACTIONS (1)
  - Pancytopenia [None]
